FAERS Safety Report 5105774-2 (Version None)
Quarter: 2006Q3

REPORT INFORMATION
  Report Type: 
  Country: None (occurrence: None)
  Receive Date: 20060915
  Receipt Date: 20060425
  Transmission Date: 20061208
  Serious: Yes (Other)
  Sender: FDA-Public Use
  Company Number: JP-ROCHE-446227

PATIENT
  Age: 6 Year
  Sex: Female
  Weight: 22 kg

DRUGS (4)
  1. ROCEPHIN [Suspect]
     Indication: PNEUMONIA
     Dosage: ROUTE REPORTED AS: INJECTABLE (NOT OTHERWISE SPECIFIED).
     Route: 050
     Dates: start: 20060407, end: 20060412
  2. MINOCYCLINE HCL [Concomitant]
     Route: 065
     Dates: start: 20060407, end: 20060412
  3. NEOPHYLLIN [Concomitant]
     Route: 065
     Dates: start: 20060409, end: 20060412
  4. THEO-DUR [Concomitant]
     Dosage: DOSE FORM REPORTED AS: ORAL FORMULATION (NOT OTHERWISE SPECIFIED).
     Route: 048
     Dates: start: 20060412, end: 20060413

REACTIONS (1)
  - PANCREATITIS ACUTE [None]
